FAERS Safety Report 25191026 (Version 1)
Quarter: 2025Q2

REPORT INFORMATION
  Report Type: Spontaneous
  Country: BE (occurrence: BE)
  Receive Date: 20250411
  Receipt Date: 20250411
  Transmission Date: 20250716
  Serious: Yes (Other)
  Sender: TEVA
  Company Number: None

PATIENT
  Age: 44 Year
  Sex: Female

DRUGS (12)
  1. CETIRIZINE [Suspect]
     Active Substance: CETIRIZINE HYDROCHLORIDE
     Indication: Product used for unknown indication
     Dosage: THE MORNING
     Route: 065
  2. CLARITHROMYCIN [Suspect]
     Active Substance: CLARITHROMYCIN
     Indication: Bronchitis
     Dosage: 2 TABLETS AND 1 DOSE WITH FOOD 20-DAY TREATMENT; BICLAR UNO
     Route: 048
     Dates: start: 20250313
  3. LISINOPRIL [Concomitant]
     Active Substance: LISINOPRIL
     Indication: Product used for unknown indication
     Dosage: THE MORNING
     Route: 065
  4. PANTOPRAZOLE SODIUM [Concomitant]
     Active Substance: PANTOPRAZOLE SODIUM
     Indication: Product used for unknown indication
     Dosage: THE MORNING
     Route: 065
  5. CALCIUM [Concomitant]
     Active Substance: CALCIUM
     Indication: Product used for unknown indication
     Dosage: IN THE EVENING: 2*500 MG
     Route: 065
  6. PRAMIPEXOLE [Concomitant]
     Active Substance: PRAMIPEXOLE
     Indication: Product used for unknown indication
     Dosage: THE MORNING
     Route: 065
  7. OTILONIUM BROMIDE [Suspect]
     Active Substance: OTILONIUM BROMIDE
     Indication: Abdominal pain upper
     Dosage: 30 MINUTES BEFORE THE MEAL
     Route: 065
  8. DESOGESTREL [Concomitant]
     Active Substance: DESOGESTREL
     Indication: Product used for unknown indication
     Dosage: THE MORNING
     Route: 065
  9. FLUTICASONE FUROATE\VILANTEROL TRIFENATATE [Concomitant]
     Active Substance: FLUTICASONE FUROATE\VILANTEROL TRIFENATATE
     Indication: Product used for unknown indication
     Dosage: THE EVENING; 184 MICROGRAMS/22 MICROGRAMS
     Route: 065
  10. BISOLVON [Concomitant]
     Active Substance: BROMHEXINE HYDROCHLORIDE
     Indication: Product used for unknown indication
     Dosage: 1/2 IN THE MORNING AND 1/2 IN THE EVENING
     Route: 065
  11. ACETAMINOPHEN\TRAMADOL [Suspect]
     Active Substance: ACETAMINOPHEN\TRAMADOL
     Indication: Abdominal pain upper
     Dosage: IN THE EVENING: 1/2 CO TRAMADOL/PARACETAMOL 37.5/325MG; TRAMADOL HYDROCHLORIDE, PARACETAMOL
     Route: 065
  12. Enterol [Concomitant]
     Indication: Product used for unknown indication
     Dosage: THE MORNING
     Route: 065

REACTIONS (3)
  - Urinary retention [Unknown]
  - Bladder pain [Unknown]
  - Renal pain [Unknown]

NARRATIVE: CASE EVENT DATE: 20250313
